FAERS Safety Report 9672053 (Version 1)
Quarter: 2013Q4

REPORT INFORMATION
  Report Type: Spontaneous
  Country: US (occurrence: US)
  Receive Date: 20131106
  Receipt Date: 20131106
  Transmission Date: 20140711
  Serious: Yes (Hospitalization)
  Sender: FDA-Public Use
  Company Number: US-CELGENEUS-163-20785-13110065

PATIENT
  Sex: Male

DRUGS (2)
  1. THALOMID [Suspect]
     Indication: LYMPHOCYTIC LEUKAEMIA
     Dosage: 200 MILLIGRAM
     Route: 048
     Dates: start: 201305
  2. THALOMID [Suspect]
     Dosage: 100 MILLIGRAM
     Route: 048
     Dates: start: 201310

REACTIONS (1)
  - Graft versus host disease [Unknown]
